FAERS Safety Report 5366102-0 (Version None)
Quarter: 2007Q2

REPORT INFORMATION
  Report Type: 
  Country: None (occurrence: None)
  Receive Date: 20070611
  Receipt Date: 20061127
  Transmission Date: 20071010
  Serious: Yes (Other)
  Sender: FDA-Public Use
  Company Number: USA-2006-0024795

PATIENT
  Age: 43 Year
  Sex: Female

DRUGS (7)
  1. OXYCONTIN [Suspect]
     Indication: CYSTITIS INTERSTITIAL
     Dosage: 80 MG, Q12H, INHALATION
     Route: 055
     Dates: start: 20050901, end: 20060701
  2. OXYCODONE HCL [Concomitant]
  3. VICODIN [Concomitant]
  4. WELLBUTRIN [Concomitant]
  5. PYRIDIUM [Concomitant]
  6. CIPRO [Concomitant]
  7. ELMIRON [Concomitant]

REACTIONS (2)
  - INADEQUATE ANALGESIA [None]
  - INTENTIONAL DRUG MISUSE [None]
